FAERS Safety Report 4319626-9 (Version None)
Quarter: 2004Q1

REPORT INFORMATION
  Report Type: 
  Country: None (occurrence: None)
  Receive Date: 20040319
  Receipt Date: 20040311
  Transmission Date: 20041129
  Serious: Yes (Hospitalization)
  Sender: FDA-Public Use
  Company Number: WAES 0403BEL00018

PATIENT
  Age: 61 Year
  Sex: Male
  Weight: 83 kg

DRUGS (13)
  1. ALFUZOSIN HYDROCHLORIDE [Concomitant]
     Route: 048
  2. CYCLOSPORINE [Concomitant]
     Route: 048
  3. FELODIPINE [Concomitant]
     Route: 048
  4. PROSCAR [Suspect]
     Route: 048
  5. LACTULOSE [Concomitant]
     Route: 048
  6. LORMETAZEPAM [Concomitant]
     Route: 048
  7. MAGNESIUM (UNSPECIFIED) [Concomitant]
     Route: 048
  8. METOPROLOL TARTRATE [Concomitant]
     Route: 048
  9. MYCOPHENOLATE MOFETIL [Concomitant]
     Route: 048
  10. OMEPRAZOLE [Concomitant]
     Route: 048
  11. PREDNISOLONE [Concomitant]
     Route: 048
  12. PSYLLIUM HUSK [Concomitant]
     Route: 048
  13. ZOCOR [Concomitant]
     Route: 048

REACTIONS (2)
  - MYOPATHY [None]
  - NEUROPATHY [None]
